FAERS Safety Report 7234956-9 (Version None)
Quarter: 2011Q1

REPORT INFORMATION
  Report Type: 
  Country: None (occurrence: None)
  Receive Date: 20110120
  Receipt Date: 20110111
  Transmission Date: 20110831
  Serious: Yes (Other)
  Sender: FDA-Public Use
  Company Number: US-BAYER-2011-004510

PATIENT
  Sex: Female

DRUGS (2)
  1. BETASERON [Suspect]
     Dosage: .3 MG, UNK
  2. CORTICOSTEROIDS [Concomitant]
     Dosage: UNK
     Route: 042

REACTIONS (1)
  - TYMPANOPLASTY [None]
